FAERS Safety Report 23544475 (Version 1)
Quarter: 2024Q1

REPORT INFORMATION
  Report Type: Spontaneous
  Country: US (occurrence: None)
  Receive Date: 20240217
  Receipt Date: 20240217
  Transmission Date: 20240409
  Serious: Yes (unspecified)
  Sender: FDA-Public Use
  Company Number: None

PATIENT
  Age: 14 Year
  Sex: Female

DRUGS (1)
  1. PREDNISONE [Suspect]
     Active Substance: PREDNISONE
     Indication: Dermatomyositis
     Dates: start: 20230201, end: 20231101

REACTIONS (4)
  - Weight increased [None]
  - Pubertal disorder [None]
  - Developmental delay [None]
  - Growth failure [None]

NARRATIVE: CASE EVENT DATE: 20230201
